FAERS Safety Report 6237049-2 (Version None)
Quarter: 2009Q2

REPORT INFORMATION
  Report Type: 
  Country: None (occurrence: None)
  Receive Date: 20090619
  Receipt Date: 20090615
  Transmission Date: 20091009
  Serious: Yes (Death)
  Sender: FDA-Public Use
  Company Number: KE-B.I. PHARMACEUTICALS,INC./RIDGEFIELD-2008-DE-05430GD

PATIENT

DRUGS (3)
  1. NEVIRAPINE [Suspect]
     Indication: PROPHYLAXIS AGAINST HIV INFECTION
     Dosage: 200 MG ONCE DAILY FOR 14 DAYS AND ESCALATED TO 200 MG TWICE DAILY THEREAFTER
  2. LAMIVUDINE [Suspect]
     Indication: PROPHYLAXIS AGAINST HIV INFECTION
     Dosage: 300MG
  3. STAVUDINE [Suspect]
     Indication: PROPHYLAXIS AGAINST HIV INFECTION
     Dosage: 80 MG (60 MG FOR PATIENTS {60 KG)

REACTIONS (1)
  - HEPATITIS ACUTE [None]
